FAERS Safety Report 22017957 (Version 2)
Quarter: 2023Q1

REPORT INFORMATION
  Report Type: Spontaneous
  Country: GB (occurrence: GB)
  Receive Date: 20230221
  Receipt Date: 20230301
  Transmission Date: 20230418
  Serious: Yes (Hospitalization)
  Sender: FDA-Public Use
  Company Number: GB-MYLANLABS-2023M1018388

PATIENT
  Age: 25 Year
  Sex: Female

DRUGS (2)
  1. CLOZARIL [Suspect]
     Active Substance: CLOZAPINE
     Indication: Schizophrenia
     Dosage: UNK
     Route: 048
     Dates: start: 20171214
  2. CLOZARIL [Suspect]
     Active Substance: CLOZAPINE
     Dosage: UNK (25MG OM AND 225MG ON)
     Route: 048

REACTIONS (5)
  - Hospitalisation [Unknown]
  - C-reactive protein increased [Unknown]
  - Vitamin D decreased [Unknown]
  - Low density lipoprotein increased [Unknown]
  - High density lipoprotein increased [Unknown]

NARRATIVE: CASE EVENT DATE: 20230129
